FAERS Safety Report 5463837-6 (Version None)
Quarter: 2007Q3

REPORT INFORMATION
  Report Type: 
  Country: None (occurrence: None)
  Receive Date: 20070919
  Receipt Date: 20070912
  Transmission Date: 20080115
  Serious: Yes (Other)
  Sender: FDA-Public Use
  Company Number: 2007SP018425

PATIENT
  Age: 42 Year
  Sex: Female

DRUGS (2)
  1. PEG-INTRON [Suspect]
     Indication: HEPATITIS C
     Dates: start: 20070710
  2. REBETOL [Suspect]
     Indication: HEPATITIS C
     Dosage: ; PO
     Route: 048
     Dates: start: 20070710

REACTIONS (11)
  - ABNORMAL FAECES [None]
  - ARTHRALGIA [None]
  - BODY TEMPERATURE INCREASED [None]
  - CHILLS [None]
  - DYSURIA [None]
  - FLATULENCE [None]
  - NAUSEA [None]
  - PRODUCTIVE COUGH [None]
  - SPUTUM DISCOLOURED [None]
  - VOMITING [None]
  - WEIGHT INCREASED [None]
